FAERS Safety Report 21393981 (Version 2)
Quarter: 2022Q4

REPORT INFORMATION
  Report Type: Spontaneous
  Country: US (occurrence: US)
  Receive Date: 20220930
  Receipt Date: 20221114
  Transmission Date: 20230113
  Serious: No
  Sender: FDA-Public Use
  Company Number: US-AIMMUNE THERAPEUTICS, INC.-2022AIMT02537

PATIENT

DRUGS (5)
  1. PALFORZIA [Suspect]
     Active Substance: PEANUT
     Indication: Food allergy
     Dosage: IDE (0.5-6MG), ONCE
     Route: 048
  2. PALFORZIA [Suspect]
     Active Substance: PEANUT
     Dosage: 200 MG, ONCE, ONLY DOSE PRIOR TO EVENT OF UNSPECIFIED REACTION
     Route: 048
     Dates: start: 20220912, end: 20220912
  3. PALFORZIA [Suspect]
     Active Substance: PEANUT
     Dosage: 160 MG, 1X/DAY, DOSE DECREASED
     Route: 048
     Dates: start: 2022, end: 2022
  4. PALFORZIA [Suspect]
     Active Substance: PEANUT
     Dosage: 200 MG, 1X/DAY, DOSE INCREASED
     Route: 048
     Dates: start: 2022
  5. PALFORZIA [Suspect]
     Active Substance: PEANUT
     Dosage: 200 MG, ONCE, LAST DOSE PRIOR TO EVENT OF STOMACH ISSUES
     Route: 048
     Dates: start: 2022, end: 2022

REACTIONS (3)
  - Adverse drug reaction [Unknown]
  - Intentional product misuse [Unknown]
  - Abdominal discomfort [Unknown]

NARRATIVE: CASE EVENT DATE: 20220912
